FAERS Safety Report 22088918 (Version 2)
Quarter: 2023Q1

REPORT INFORMATION
  Report Type: Report from Study
  Country: PL (occurrence: PL)
  Receive Date: 20230313
  Receipt Date: 20230316
  Transmission Date: 20230418
  Serious: Yes (Death)
  Sender: FDA-Public Use
  Company Number: PL-009507513-2303POL002935

PATIENT
  Age: 52 Year
  Sex: Female

DRUGS (17)
  1. KEYTRUDA [Suspect]
     Active Substance: PEMBROLIZUMAB
     Indication: Glioblastoma multiforme
     Dosage: 200 MILLIGRAM, Q3W
     Route: 042
     Dates: start: 20221109, end: 20230202
  2. KEYTRUDA [Suspect]
     Active Substance: PEMBROLIZUMAB
     Dosage: 200 MILLIGRAM; UNK
     Dates: start: 20230111, end: 20230111
  3. KEYTRUDA [Suspect]
     Active Substance: PEMBROLIZUMAB
     Dosage: 200 MILLIGRAM; UNK
     Dates: start: 20230202, end: 20230202
  4. TEMOZOLOMIDE [Suspect]
     Active Substance: TEMOZOLOMIDE
     Indication: Glioblastoma multiforme
  5. FILGRASTIM [Concomitant]
     Active Substance: FILGRASTIM
     Indication: Pancytopenia
     Dosage: 48 MLN UNITS
     Route: 058
     Dates: start: 20230214, end: 20230227
  6. CIPRONEX [CIPROFLOXACIN] [Concomitant]
     Indication: Pancytopenia
     Dosage: 400 MILLIGRAM, Q12H
     Route: 042
     Dates: start: 20230214, end: 20230227
  7. CEFTAZIDIME [Concomitant]
     Active Substance: CEFTAZIDIME
     Indication: Pancytopenia
     Dosage: 2 GRAM, Q8H
     Route: 042
     Dates: start: 20230227, end: 20230227
  8. ACYCLOVIR [Concomitant]
     Active Substance: ACYCLOVIR
     Indication: Pancytopenia
     Dosage: 500 MILLIGRAM, Q8H
     Route: 042
     Dates: start: 20230214, end: 20230227
  9. FLUCONAZOLE [Concomitant]
     Active Substance: FLUCONAZOLE
     Indication: Pancytopenia
     Dosage: 1X100MG
     Route: 042
     Dates: start: 20230214, end: 20230227
  10. LEVETIRACETAM [Concomitant]
     Active Substance: LEVETIRACETAM
     Dosage: 2X500MG
     Route: 042
     Dates: start: 20230227, end: 20230227
  11. DEXAMETHASONE [Concomitant]
     Active Substance: DEXAMETHASONE
     Indication: Oedema
     Dosage: 2X8MG
     Route: 042
     Dates: start: 20230219, end: 20230227
  12. PREDNISONE [Concomitant]
     Active Substance: PREDNISONE
     Dosage: 20MG-20MG-10MG
     Dates: start: 20230208, end: 20230227
  13. MANNITOL [Concomitant]
     Active Substance: MANNITOL
     Indication: Oedema
     Dosage: 250 DOSAGE FORM, BID
     Route: 042
     Dates: start: 20230110
  14. FERROUS SULFATE [Concomitant]
     Active Substance: FERROUS SULFATE
     Indication: Anaemia
     Dosage: 2X1 TABLET
     Route: 048
     Dates: start: 20230130
  15. ESCITALOPRAM OXALATE [Concomitant]
     Active Substance: ESCITALOPRAM OXALATE
     Dosage: 1X20MG
     Dates: end: 20230226
  16. POTASSIUM CHLORIDE [Concomitant]
     Active Substance: POTASSIUM CHLORIDE
     Dosage: 3X1 TABLET
     Route: 048
     Dates: end: 20230226
  17. LEVOTHYROXINE SODIUM [Concomitant]
     Active Substance: LEVOTHYROXINE SODIUM
     Indication: Hypothyroidism
     Dosage: 1X100UG

REACTIONS (1)
  - Multiple organ dysfunction syndrome [Fatal]

NARRATIVE: CASE EVENT DATE: 20230227
